FAERS Safety Report 7912719-6 (Version None)
Quarter: 2011Q4

REPORT INFORMATION
  Report Type: 
  Country: None (occurrence: None)
  Receive Date: 20111114
  Receipt Date: 20111109
  Transmission Date: 20120403
  Serious: Yes (Congenital Anomaly, Other)
  Sender: FDA-Public Use
  Company Number: US-PFIZER INC-2011262821

PATIENT
  Sex: Male
  Weight: 3.32 kg

DRUGS (6)
  1. ZOLOFT [Suspect]
     Indication: DEPRESSION
  2. SERTRALINE [Concomitant]
     Dosage: 75 MG, 1X/DAY
     Route: 064
     Dates: start: 20081119
  3. SERTRALINE [Concomitant]
     Dosage: 100 MG, 1X/DAY
     Route: 064
     Dates: start: 20090729
  4. ZOLOFT [Suspect]
     Indication: ANXIETY
     Dosage: 50 MG, 1X/DAY
     Route: 064
  5. SERTRALINE [Concomitant]
     Dosage: 50 MG, 1X/DAY
     Route: 064
     Dates: start: 20100422
  6. SERTRALINE [Concomitant]
     Dosage: ONE AND HALF TABLET PER ORAL ONCE DAILY
     Route: 064
     Dates: start: 20091002

REACTIONS (2)
  - HEART DISEASE CONGENITAL [None]
  - MATERNAL EXPOSURE TIMING UNSPECIFIED [None]
